FAERS Safety Report 24216503 (Version 2)
Quarter: 2024Q3

REPORT INFORMATION
  Report Type: Report from Study
  Country: CN (occurrence: CN)
  Receive Date: 20240816
  Receipt Date: 20240905
  Transmission Date: 20241017
  Serious: Yes (Other)
  Sender: RANBAXY
  Company Number: CN-SUN PHARMACEUTICAL INDUSTRIES LTD-2023R1-418405

PATIENT
  Age: 41 Year
  Sex: Male
  Weight: 97 kg

DRUGS (1)
  1. SONIDEGIB [Suspect]
     Active Substance: SONIDEGIB
     Indication: Basal cell carcinoma
     Dosage: 200 MILLIGRAM, QD
     Route: 048
     Dates: start: 20230929

REACTIONS (15)
  - Haematuria [Recovered/Resolved]
  - Alanine aminotransferase increased [Recovering/Resolving]
  - Vomiting [Recovered/Resolved]
  - Asthenia [Recovered/Resolved]
  - Pyrexia [Recovered/Resolved]
  - Diarrhoea [Recovered/Resolved]
  - Hypercholesterolaemia [Recovering/Resolving]
  - Intervertebral disc protrusion [Recovering/Resolving]
  - Electrocardiogram T wave abnormal [Recovered/Resolved]
  - Madarosis [Not Recovered/Not Resolved]
  - Electrocardiogram P wave abnormal [Recovered/Resolved]
  - Alopecia [Not Recovered/Not Resolved]
  - Toothache [Recovered/Resolved]
  - Folliculitis [Recovering/Resolving]
  - Muscular weakness [Unknown]

NARRATIVE: CASE EVENT DATE: 20231001
